FAERS Safety Report 11202462 (Version 5)
Quarter: 2015Q4

REPORT INFORMATION
  Report Type: Spontaneous
  Country: US (occurrence: US)
  Receive Date: 20150619
  Receipt Date: 20151103
  Transmission Date: 20160304
  Serious: Yes (Hospitalization, Other)
  Sender: FDA-Public Use
  Company Number: US-BAYER-2015-329450

PATIENT
  Age: 28 Year
  Sex: Female

DRUGS (4)
  1. ZONISAMIDE. [Concomitant]
     Active Substance: ZONISAMIDE
     Dosage: UNK
     Dates: start: 2008
  2. CIPROFLOXACIN. [Concomitant]
     Active Substance: CIPROFLOXACIN
     Dosage: 250 MG, UNK
  3. OXCARBAZEPINE. [Concomitant]
     Active Substance: OXCARBAZEPINE
     Dosage: UNK
     Dates: start: 2007
  4. MIRENA [Suspect]
     Active Substance: LEVONORGESTREL
     Indication: MENORRHAGIA
     Dosage: 20 MCG/24HR, CONT
     Route: 015
     Dates: start: 20140311, end: 20140718

REACTIONS (11)
  - Fallopian tube perforation [None]
  - Drug ineffective [None]
  - Emotional distress [None]
  - Injury [None]
  - Device dislocation [None]
  - Depression [None]
  - Pain [None]
  - Autism [None]
  - Anxiety [None]
  - Aphasia [None]
  - Uterine perforation [None]

NARRATIVE: CASE EVENT DATE: 201407
